FAERS Safety Report 13170111 (Version 4)
Quarter: 2017Q1

REPORT INFORMATION
  Report Type: Report from Study
  Country: US (occurrence: US)
  Receive Date: 20170201
  Receipt Date: 20170228
  Transmission Date: 20170428
  Serious: Yes (Hospitalization, Other)
  Sender: FDA-Public Use
  Company Number: US-AMGEN-USASP2017015122

PATIENT
  Sex: Male

DRUGS (2)
  1. ENBREL [Suspect]
     Active Substance: ETANERCEPT
     Dosage: UNK
     Route: 065
  2. ENBREL [Suspect]
     Active Substance: ETANERCEPT
     Indication: RHEUMATOID ARTHRITIS
     Dosage: 50 MG, QWK
     Route: 065

REACTIONS (8)
  - Pain in extremity [Unknown]
  - Immunosuppression [Unknown]
  - Blood glucose decreased [Recovering/Resolving]
  - Peripheral swelling [Not Recovered/Not Resolved]
  - Pyrexia [Recovering/Resolving]
  - Drug dose omission [Unknown]
  - Malaise [Unknown]
  - Influenza like illness [Recovering/Resolving]
